FAERS Safety Report 12960102 (Version 2)
Quarter: 2016Q4

REPORT INFORMATION
  Report Type: Spontaneous
  Country: NL (occurrence: NL)
  Receive Date: 20161121
  Receipt Date: 20161205
  Transmission Date: 20170207
  Serious: Yes (Hospitalization)
  Sender: FDA-Public Use
  Company Number: NL-TEVA-712156ACC

PATIENT
  Age: 80 Year
  Sex: Female
  Weight: 65 kg

DRUGS (7)
  1. PANTOPRAZOLE SODIUM. [Concomitant]
     Active Substance: PANTOPRAZOLE SODIUM
     Dosage: 20 MILLIGRAM DAILY; 1 TIME PER DAY 1 PIECE(S)
     Route: 048
  2. DILTIAZEM CAPSULE MGA 200MG [Concomitant]
     Dosage: 200 MILLIGRAM DAILY; 1 TIME PER DAY 1 PIECE(S)
     Route: 048
  3. HYDROCHLOROTHIAZIDE TABLET 25MG [Suspect]
     Active Substance: HYDROCHLOROTHIAZIDE
     Indication: HYPERTENSION
     Dosage: 25 MILLIGRAM DAILY; 1 TIME PER DAY 1 PIECE(S)
     Route: 048
     Dates: start: 201607, end: 201608
  4. NAPROXEN TABLET 500MG [Suspect]
     Active Substance: NAPROXEN
     Indication: PAIN
     Dosage: 1000 MILLIGRAM DAILY; TIMES PER DAY 1 PIECE(S)
     Route: 048
     Dates: start: 20160805, end: 20160812
  5. SIMVASTATINE TABLET FO 20MG [Concomitant]
     Dosage: 20 MILLIGRAM DAILY; 1 TIME PER DAY 1 PIECE(S)
     Route: 048
  6. ACETYLSALICYLZUUR DISPERTABLET 80MG [Concomitant]
     Active Substance: ASPIRIN
     Dosage: 80 MILLIGRAM DAILY; 1 TIME PER DAY 1 PIECE(S)
     Route: 048
  7. VESICARE TABLET FILMOMHULD 10MG [Concomitant]
     Dosage: 10 MILLIGRAM DAILY; 1 TIME PER DAY 1 PIECE(S)
     Route: 048

REACTIONS (4)
  - Alkalosis [Recovered/Resolved]
  - Electrolyte imbalance [Recovered/Resolved]
  - Abnormal behaviour [Recovered/Resolved]
  - Drug interaction [Recovered/Resolved]

NARRATIVE: CASE EVENT DATE: 201608
